FAERS Safety Report 8100671 (Version 3)
Quarter: 2013Q4

REPORT INFORMATION
  Report Type: Spontaneous
  Country: FR (occurrence: FR)
  Receive Date: 20110822
  Receipt Date: 20131107
  Transmission Date: 20140711
  Serious: Yes (Hospitalization, Other)
  Sender: FDA-Public Use
  Company Number: FR-JNJFOC-20110807235

PATIENT
  Age: 53 Year
  Sex: Female

DRUGS (4)
  1. STELARA [Suspect]
     Indication: PSORIASIS
     Route: 058
     Dates: start: 20110324, end: 201106
  2. REMICADE [Suspect]
     Indication: PSORIASIS
     Route: 042
     Dates: start: 20100609, end: 20110207
  3. METHOTREXATE [Suspect]
     Indication: PSORIASIS
     Route: 048
     Dates: end: 201005
  4. SORIATANE [Concomitant]
     Indication: PSORIASIS

REACTIONS (1)
  - Malignant melanoma [Recovered/Resolved with Sequelae]
